FAERS Safety Report 24768208 (Version 1)
Quarter: 2024Q4

REPORT INFORMATION
  Report Type: Spontaneous
  Country: US (occurrence: None)
  Receive Date: 20241223
  Receipt Date: 20241223
  Transmission Date: 20250115
  Serious: No
  Sender: Public
  Company Number: None

PATIENT
  Age: 79 Year
  Sex: Male

DRUGS (1)
  1. JAKAFI [Suspect]
     Active Substance: RUXOLITINIB
     Indication: Myelofibrosis
     Dosage: FREQUENCY : DAILY;?
     Route: 048
     Dates: start: 20151009

REACTIONS (5)
  - Pneumonia [None]
  - Cardiac failure congestive [None]
  - Atrial fibrillation [None]
  - Coma [None]
  - Wrong technique in product usage process [None]

NARRATIVE: CASE EVENT DATE: 20240909
